FAERS Safety Report 4399640-8 (Version None)
Quarter: 2004Q3

REPORT INFORMATION
  Report Type: 
  Country: None (occurrence: None)
  Receive Date: 20040713
  Receipt Date: 20040629
  Transmission Date: 20050211
  Serious: Yes (Other)
  Sender: FDA-Public Use
  Company Number: S04-USA-03834-01

PATIENT
  Sex: Female

DRUGS (3)
  1. LEXAPRO [Suspect]
     Dosage: 10 MG QD PO
     Route: 048
  2. CALCIUM CHANNEL BLOCKER (NOS) [Concomitant]
  3. BETA BLOCKER (NOS) [Concomitant]

REACTIONS (1)
  - MONOPLEGIA [None]
